FAERS Safety Report 10230964 (Version 1)
Quarter: 2014Q2

REPORT INFORMATION
  Report Type: Spontaneous
  Country: US (occurrence: None)
  Receive Date: 20140610
  Receipt Date: 20140610
  Transmission Date: 20141212
  Serious: Yes (Life-Threatening)
  Sender: FDA-Public Use
  Company Number: None

PATIENT
  Age: 32 Year
  Sex: Female
  Weight: 68.49 kg

DRUGS (1)
  1. PREDNISONE [Suspect]
     Indication: RASH
     Dosage: 5 PILLS 2 DAYS, , 4.5 PILLS 2 DY,  ONCE DAILY  TAKEN BY MOUTH
     Route: 048
     Dates: start: 20140602, end: 20140608

REACTIONS (17)
  - Sluggishness [None]
  - Headache [None]
  - Dizziness [None]
  - Depression [None]
  - Hypoaesthesia [None]
  - Insomnia [None]
  - Hyperhidrosis [None]
  - Hallucination, visual [None]
  - Asthenia [None]
  - Irritability [None]
  - Mood swings [None]
  - Aggression [None]
  - Pruritus [None]
  - Abnormal behaviour [None]
  - Drug ineffective [None]
  - Fall [None]
  - Disorientation [None]
